FAERS Safety Report 5078145-5 (Version None)
Quarter: 2006Q3

REPORT INFORMATION
  Report Type: 
  Country: None (occurrence: None)
  Receive Date: 20060808
  Receipt Date: 20060720
  Transmission Date: 20061208
  Serious: Yes (Hospitalization)
  Sender: FDA-Public Use
  Company Number: FR200607003657

PATIENT
  Age: 67 Year
  Sex: Female

DRUGS (13)
  1. FORTEO [Suspect]
     Indication: OSTEOPOROSIS
     Dosage: 20 UG, DAILY (1/D), SUBCUTANEOUS
     Route: 058
     Dates: start: 20050226
  2. FORTEO [Concomitant]
  3. INSULATARD NPH HUMAN [Concomitant]
  4. INSULIN RAPID (INSULIN HUMAN SEMISYNTHETIC) [Concomitant]
  5. TENORMIN [Concomitant]
  6. EUPRESSYL (URAPIDIL) [Concomitant]
  7. BIPRETERAX (INDAPAMIDE, PERINDOPRIL ERBUMINE) [Concomitant]
  8. HYDROCORTISONE [Concomitant]
  9. POTASSIUM CHLORIDE [Concomitant]
  10. SULFARLEM (ANETHOLE TRITHIONE) [Concomitant]
  11. MORPHINE SULFATE [Concomitant]
  12. MORPHINE SULFATE [Concomitant]
  13. LORAZEPAM [Concomitant]

REACTIONS (12)
  - BONE PAIN [None]
  - BURNING SENSATION [None]
  - CONDITION AGGRAVATED [None]
  - DENTAL NECROSIS [None]
  - DIABETES MELLITUS INADEQUATE CONTROL [None]
  - DRY MOUTH [None]
  - FATIGUE [None]
  - MYALGIA [None]
  - PAIN IN EXTREMITY [None]
  - PRURITUS [None]
  - RASH ERYTHEMATOUS [None]
  - SYSTEMIC LUPUS ERYTHEMATOSUS [None]
